FAERS Safety Report 6574525-7 (Version None)
Quarter: 2010Q1

REPORT INFORMATION
  Report Type: 
  Country: None (occurrence: None)
  Receive Date: 20100209
  Receipt Date: 20091111
  Transmission Date: 20100710
  Serious: No
  Sender: FDA-Public Use
  Company Number: A0816518A

PATIENT
  Age: 41 Year
  Sex: Female

DRUGS (2)
  1. PAXIL [Suspect]
     Dosage: 30MG PER DAY
     Route: 048
  2. NORDETTE-21 [Concomitant]

REACTIONS (4)
  - FEELING ABNORMAL [None]
  - MENSTRUAL DISORDER [None]
  - NAUSEA [None]
  - TENSION [None]
